FAERS Safety Report 9529724 (Version 1)
Quarter: 2013Q3

REPORT INFORMATION
  Report Type: Spontaneous
  Country: US (occurrence: US)
  Receive Date: 20130917
  Receipt Date: 20130917
  Transmission Date: 20140515
  Serious: No
  Sender: FDA-Public Use
  Company Number: US-SANOFI-AVENTIS-2013SA080842

PATIENT
  Age: 71 Year
  Sex: Female
  Weight: 70 kg

DRUGS (7)
  1. DDAVP [Suspect]
     Indication: DIABETES INSIPIDUS
     Dosage: TAKEN FROM- MANY YEARS
     Route: 065
  2. DDAVP [Suspect]
     Indication: POLYDIPSIA
     Dosage: TAKEN FROM- MANY YEARS
     Route: 065
  3. DDAVP [Suspect]
     Indication: POLYURIA
     Dosage: TAKEN FROM- MANY YEARS
     Route: 065
  4. ZOCOR [Concomitant]
     Route: 065
  5. VICODIN [Concomitant]
     Route: 065
  6. NEXIUM [Concomitant]
     Route: 065
  7. WELCHOL [Concomitant]
     Route: 065

REACTIONS (2)
  - Drug ineffective [Unknown]
  - Incorrect product storage [Unknown]
